FAERS Safety Report 9038830 (Version 1)
Quarter: 2013Q1

REPORT INFORMATION
  Report Type: Spontaneous
  Country: US (occurrence: None)
  Receive Date: 20130123
  Receipt Date: 20130123
  Transmission Date: 20140127
  Serious: No
  Sender: FDA-Public Use
  Company Number: None

PATIENT
  Age: 65 None
  Sex: Female
  Weight: 95.26 kg

DRUGS (1)
  1. LEVAQUIN [Suspect]
     Indication: URINARY TRACT INFECTION
     Dosage: 250 MG ONE A DAY FOR 5 DAYS ONLY TOOK 2 / 2 PILL

REACTIONS (9)
  - Headache [None]
  - Neck pain [None]
  - Pain in extremity [None]
  - Pain in extremity [None]
  - Back pain [None]
  - Burning sensation [None]
  - Pain [None]
  - Arthralgia [None]
  - Tendon pain [None]
